FAERS Safety Report 4308925-2 (Version None)
Quarter: 2004Q1

REPORT INFORMATION
  Report Type: 
  Country: None (occurrence: None)
  Receive Date: 20040227
  Receipt Date: 20040218
  Transmission Date: 20041129
  Serious: Yes (Hospitalization)
  Sender: FDA-Public Use
  Company Number: HQWYE149519FEB04

PATIENT
  Age: 86 Year
  Sex: Female
  Weight: 57.2 kg

DRUGS (4)
  1. PREMARIN [Suspect]
     Indication: OESTROGEN THERAPY
     Dosage: 1.25 MG DAILY, ORAL
     Route: 048
     Dates: end: 20030701
  2. UNSPECIFIED ANTIDEPRESSANT (UNSPECIFIED ANTIDEPRESSANT) [Concomitant]
  3. UNSPECIFIED ANTIDIABETIC AGENT (UNSPECIFIED ANTIDIABETIC AGENT) [Concomitant]
  4. UNSPECIFIED ANTIHYPERTENSIVE AGENT (UNSPECIFIED ANTIHYPERTENSIVE AGENT [Concomitant]

REACTIONS (4)
  - DEMENTIA [None]
  - PNEUMONIA [None]
  - RESTLESS LEGS SYNDROME [None]
  - SWELLING [None]
